FAERS Safety Report 18534791 (Version 1)
Quarter: 2020Q4

REPORT INFORMATION
  Report Type: Spontaneous
  Country: AR (occurrence: AR)
  Receive Date: 20201123
  Receipt Date: 20201123
  Transmission Date: 20210114
  Serious: Yes (Hospitalization)
  Sender: FDA-Public Use
  Company Number: AR-AMGEN-ARGSP2020189952

PATIENT
  Age: 73 Year
  Sex: Female

DRUGS (1)
  1. ENBREL [Suspect]
     Active Substance: ETANERCEPT
     Indication: RHEUMATOID ARTHRITIS
     Dosage: 50 MG, WEEKLY
     Route: 065
     Dates: start: 20110301

REACTIONS (6)
  - Gait disturbance [Unknown]
  - Blood pressure abnormal [Unknown]
  - Decreased immune responsiveness [Unknown]
  - Weight decreased [Unknown]
  - Arthralgia [Unknown]
  - Somatic symptom disorder [Unknown]
